FAERS Safety Report 11922906 (Version 2)
Quarter: 2016Q1

REPORT INFORMATION
  Report Type: Spontaneous
  Country: DE (occurrence: DE)
  Receive Date: 20160116
  Receipt Date: 20160210
  Transmission Date: 20160526
  Serious: Yes (Hospitalization, Other)
  Sender: FDA-Public Use
  Company Number: DE-AMGEN-DEUSP2016004592

PATIENT
  Age: 75 Year
  Sex: Female

DRUGS (13)
  1. BROMAZANIL [Concomitant]
     Active Substance: BROMAZEPAM
  2. ATORVASTATIN 1A PHARMA [Concomitant]
     Dosage: UNK
     Route: 048
     Dates: end: 20150213
  3. EZETROL [Concomitant]
     Active Substance: EZETIMIBE
     Dosage: 10 MG, UNK
     Route: 048
  4. FUROSEMID                          /00032601/ [Concomitant]
     Active Substance: FUROSEMIDE
     Route: 048
  5. MAGNESIUM VERLA N                  /01455601/ [Concomitant]
  6. MARCUMAR [Concomitant]
     Active Substance: PHENPROCOUMON
  7. SALMETEROL HEXAL [Concomitant]
     Active Substance: SALMETEROL
  8. PLAVIX [Concomitant]
     Active Substance: CLOPIDOGREL BISULFATE
     Dosage: UNK
     Route: 048
     Dates: end: 201601
  9. REPATHA [Suspect]
     Active Substance: EVOLOCUMAB
     Indication: HYPERCHOLESTEROLAEMIA
     Dosage: 140 MG, Q2WK
     Route: 058
     Dates: start: 20151015
  10. PANTOZOL [Concomitant]
     Active Substance: PANTOPRAZOLE SODIUM
     Dosage: 40 MG, UNK
     Route: 048
  11. NEBIVOLOL AL [Concomitant]
     Dosage: 5 MG, UNK
     Route: 048
  12. ASS 1 A PHARMA [Concomitant]
     Dosage: UNK
     Route: 048
  13. RESONIUM A [Concomitant]
     Active Substance: SODIUM POLYSTYRENE SULFONATE
     Dosage: UNK UNK, QOD

REACTIONS (1)
  - Pancreatitis relapsing [Recovered/Resolved]

NARRATIVE: CASE EVENT DATE: 20151207
